FAERS Safety Report 10667075 (Version 1)
Quarter: 2014Q4

REPORT INFORMATION
  Report Type: Spontaneous
  Country: US (occurrence: None)
  Receive Date: 20141219
  Receipt Date: 20141219
  Transmission Date: 20150529
  Serious: Yes (Disabling, Other)
  Sender: FDA-Public Use
  Company Number: None

PATIENT
  Age: 62 Year
  Sex: Female
  Weight: 54.89 kg

DRUGS (1)
  1. METFORMIN [Suspect]
     Active Substance: METFORMIN HYDROCHLORIDE
     Dosage: ONE PILL  ONCE DAILY TAKEN BY MOUTH
     Route: 048

REACTIONS (16)
  - Anxiety [None]
  - Nervousness [None]
  - Fatigue [None]
  - Somnolence [None]
  - Suicidal ideation [None]
  - Asthenia [None]
  - Myalgia [None]
  - Dizziness [None]
  - Nightmare [None]
  - Poor quality sleep [None]
  - Muscle spasms [None]
  - Vision blurred [None]
  - Depression [None]
  - Confusional state [None]
  - Pain [None]
  - Decreased appetite [None]

NARRATIVE: CASE EVENT DATE: 20141118
